FAERS Safety Report 4364704-1 (Version None)
Quarter: 2004Q2

REPORT INFORMATION
  Report Type: 
  Country: None (occurrence: None)
  Receive Date: 20040525
  Receipt Date: 20040525
  Transmission Date: 20050107
  Serious: Yes (Hospitalization)
  Sender: FDA-Public Use
  Company Number: None

PATIENT
  Age: 57 Year
  Sex: Male
  Weight: 76.2043 kg

DRUGS (6)
  1. ZYVOX [Suspect]
     Indication: DECUBITUS ULCER
     Dosage: 600 MG Q12H ORAL
     Route: 048
     Dates: start: 20040401, end: 20040523
  2. ZYVOX [Suspect]
     Indication: PARAPLEGIA
     Dosage: 600 MG Q12H ORAL
     Route: 048
     Dates: start: 20040401, end: 20040523
  3. ZYVOX [Suspect]
     Indication: STAPHYLOCOCCAL BACTERAEMIA
     Dosage: 600 MG Q12H ORAL
     Route: 048
     Dates: start: 20040401, end: 20040523
  4. LEVAQUIN [Concomitant]
  5. PROTONIX [Concomitant]
  6. TYLENOL [Concomitant]

REACTIONS (1)
  - APLASIA PURE RED CELL [None]
